FAERS Safety Report 4523940-1 (Version None)
Quarter: 2004Q4

REPORT INFORMATION
  Report Type: 
  Country: None (occurrence: None)
  Receive Date: 20041209
  Receipt Date: 20041202
  Transmission Date: 20050328
  Serious: Yes (Other)
  Sender: FDA-Public Use
  Company Number: 163-20785-04120156

PATIENT
  Age: 68 Year
  Sex: Female

DRUGS (3)
  1. THALOMID [Suspect]
     Indication: MULTIPLE MYELOMA
     Dosage: 50 MG, DAILY, ORAL; 200 MG, DAILY, ORAL; 50 MG, QOD, ORAL
     Route: 048
     Dates: start: 20020701
  2. AREDIA [Suspect]
     Indication: MULTIPLE MYELOMA
  3. HIGH BLOOD PRESSURE MEDICATION (ANTIHYPERTENSIVES) [Concomitant]

REACTIONS (6)
  - BALANCE DISORDER [None]
  - BREAST PAIN [None]
  - BREAST SWELLING [None]
  - IMPLANT SITE HAEMORRHAGE [None]
  - POSITRON EMISSION TOMOGRAM ABNORMAL [None]
  - POST PROCEDURAL COMPLICATION [None]
